FAERS Safety Report 24770924 (Version 1)
Quarter: 2024Q4

REPORT INFORMATION
  Report Type: Spontaneous
  Country: US (occurrence: US)
  Receive Date: 20241224
  Receipt Date: 20241224
  Transmission Date: 20250114
  Serious: No
  Sender: MERCK
  Company Number: US-009507513-2412USA004115

PATIENT
  Age: 75 Year
  Sex: Female

DRUGS (4)
  1. TEMODAR [Suspect]
     Active Substance: TEMOZOLOMIDE
     Indication: Neoplasm recurrence
     Dosage: 1ST CY CLE (4 W EEKS)
     Route: 048
     Dates: start: 201705, end: 2017
  2. TEMODAR [Suspect]
     Active Substance: TEMOZOLOMIDE
     Indication: Central nervous system lymphoma
     Dosage: 2ND CY CLE (4 W EEKS)
     Route: 048
     Dates: start: 2017, end: 2017
  3. RITUXIMAB [Concomitant]
     Active Substance: RITUXIMAB
     Indication: Neoplasm recurrence
  4. RITUXIMAB [Concomitant]
     Active Substance: RITUXIMAB
     Indication: Central nervous system lymphoma

REACTIONS (1)
  - Product use in unapproved indication [Unknown]

NARRATIVE: CASE EVENT DATE: 20170501
